FAERS Safety Report 12602734 (Version 4)
Quarter: 2017Q4

REPORT INFORMATION
  Report Type: Report from Study
  Country: US (occurrence: US)
  Receive Date: 20160728
  Receipt Date: 20171030
  Transmission Date: 20180320
  Serious: Yes (Hospitalization)
  Sender: FDA-Public Use
  Company Number: US-EISAI MEDICAL RESEARCH-EC-2016-018125

PATIENT
  Age: 63 Year
  Sex: Female
  Weight: 109.8 kg

DRUGS (22)
  1. BISACODYL. [Concomitant]
     Active Substance: BISACODYL
  2. FUROSEMIDE. [Concomitant]
     Active Substance: FUROSEMIDE
  3. POLYSACCHARIDE-IRON COMPLEX [Concomitant]
  4. ONDANSETRON [Concomitant]
     Active Substance: ONDANSETRON
  5. LENVATINIB [Suspect]
     Active Substance: LENVATINIB
     Route: 048
     Dates: start: 20160714, end: 20160723
  6. METFORMIN [Concomitant]
     Active Substance: METFORMIN HYDROCHLORIDE
  7. POLYETHYLENE GLYCOL [Concomitant]
     Active Substance: POLYETHYLENE GLYCOLS
  8. SENNA [Concomitant]
     Active Substance: SENNA LEAF\SENNOSIDES\SENNOSIDES A AND B
  9. SILVER SULFADIAZINE. [Concomitant]
     Active Substance: SILVER SULFADIAZINE
  10. MIDAZOLAM [Concomitant]
     Active Substance: MIDAZOLAM HYDROCHLORIDE
     Dosage: 2 ML
     Route: 048
     Dates: start: 20160607, end: 20160623
  11. LOVENOX [Concomitant]
     Active Substance: ENOXAPARIN SODIUM
  12. MONTELUKAST [Concomitant]
     Active Substance: MONTELUKAST SODIUM
  13. MORPHINE [Concomitant]
     Active Substance: MORPHINE
  14. LENVATINIB [Suspect]
     Active Substance: LENVATINIB
     Indication: BREAST CANCER
     Route: 048
     Dates: start: 20160610, end: 20160706
  15. FLUTICASONE. [Concomitant]
     Active Substance: FLUTICASONE
  16. LIDOCAINE SUSPENSION [Concomitant]
  17. LABETALOL [Concomitant]
     Active Substance: LABETALOL\LABETALOL HYDROCHLORIDE
  18. ALBUTEROL. [Concomitant]
     Active Substance: ALBUTEROL
  19. ELIQUIS [Concomitant]
     Active Substance: APIXABAN
  20. ASPIRIN. [Concomitant]
     Active Substance: ASPIRIN
  21. DOCUSATE SODIUM. [Concomitant]
     Active Substance: DOCUSATE SODIUM
  22. VALSARTAN. [Concomitant]
     Active Substance: VALSARTAN

REACTIONS (2)
  - Angina pectoris [Recovered/Resolved]
  - Breast discharge [Recovered/Resolved]

NARRATIVE: CASE EVENT DATE: 20160624
